FAERS Safety Report 5268193-4 (Version None)
Quarter: 2007Q1

REPORT INFORMATION
  Report Type: 
  Country: None (occurrence: None)
  Receive Date: 20070314
  Receipt Date: 20070314
  Transmission Date: 20070707
  Serious: Yes (Hospitalization)
  Sender: FDA-Public Use
  Company Number: None

PATIENT
  Sex: Male
  Weight: 93 kg

DRUGS (11)
  1. ERLOTINIB 150 MG GENENTECH [Suspect]
     Indication: PANCREATIC CARCINOMA
     Dosage: 150 MG ONCE A DAY PO
     Route: 048
     Dates: start: 20070207, end: 20070309
  2. XELODA [Suspect]
     Dosage: 1650 MG TWICE A DAY PO
     Route: 048
     Dates: start: 20070207, end: 20070309
  3. PANCREASE [Concomitant]
  4. PREVACID [Concomitant]
  5. ZOLOFT [Concomitant]
  6. IMODIUM [Concomitant]
  7. ZOFRAN [Concomitant]
  8. LOMOTIL [Concomitant]
  9. TINCTURE OF OPIUM [Concomitant]
  10. BENTYL [Concomitant]
  11. PREVACID [Concomitant]

REACTIONS (5)
  - ASTHENIA [None]
  - DIARRHOEA [None]
  - HEART RATE INCREASED [None]
  - PYREXIA [None]
  - RESPIRATORY RATE INCREASED [None]
